FAERS Safety Report 5000087-1 (Version None)
Quarter: 2006Q2

REPORT INFORMATION
  Report Type: 
  Country: None (occurrence: None)
  Receive Date: 20060509
  Receipt Date: 20060427
  Transmission Date: 20061013
  Serious: Yes (Hospitalization)
  Sender: FDA-Public Use
  Company Number: MEDI-0004513

PATIENT
  Age: 3 Month
  Weight: 3.25 kg

DRUGS (5)
  1. SYNAGIS [Suspect]
     Indication: ANTIVIRAL PROPHYLAXIS
     Dosage: 75 + 76 + 100 MG, 1 IN 30 D, INTRAMUSCULAR
     Route: 030
     Dates: start: 20051004, end: 20051004
  2. SYNAGIS [Suspect]
     Indication: ANTIVIRAL PROPHYLAXIS
     Dosage: 75 + 76 + 100 MG, 1 IN 30 D, INTRAMUSCULAR
     Route: 030
     Dates: start: 20060213, end: 20060213
  3. SYNAGIS [Suspect]
     Indication: ANTIVIRAL PROPHYLAXIS
     Dosage: 75 + 76 + 100 MG, 1 IN 30 D, INTRAMUSCULAR
     Route: 030
     Dates: start: 20051031
  4. SYNAGIS [Suspect]
     Indication: ANTIVIRAL PROPHYLAXIS
     Dosage: 75 + 76 + 100 MG, 1 IN 30 D, INTRAMUSCULAR
     Route: 030
     Dates: start: 20051205
  5. SYNAGIS [Suspect]
     Indication: ANTIVIRAL PROPHYLAXIS
     Dosage: 75 + 76 + 100 MG, 1 IN 30 D, INTRAMUSCULAR
     Route: 030
     Dates: start: 20060109

REACTIONS (1)
  - BRONCHIOLITIS [None]
